FAERS Safety Report 11440647 (Version 1)
Quarter: 2015Q3

REPORT INFORMATION
  Report Type: Spontaneous
  Country: US (occurrence: None)
  Receive Date: 20150831
  Receipt Date: 20150831
  Transmission Date: 20151125
  Serious: Yes (Hospitalization, Disabling)
  Sender: FDA-Public Use
  Company Number: None

PATIENT
  Age: 74 Year
  Sex: Male
  Weight: 85.28 kg

DRUGS (5)
  1. REMICADE [Suspect]
     Active Substance: INFLIXIMAB
     Indication: COLITIS ULCERATIVE
     Route: 042
     Dates: start: 20150621, end: 20150706
  2. MULTI-VIT [Concomitant]
     Active Substance: VITAMINS
  3. LACTO-BACILLUS [Concomitant]
  4. PREDNISONE. [Concomitant]
     Active Substance: PREDNISONE
  5. PANTROPRAZOLE [Concomitant]

REACTIONS (3)
  - Respiratory tract infection [None]
  - Alveolar lung disease [None]
  - Treatment failure [None]

NARRATIVE: CASE EVENT DATE: 20150730
